FAERS Safety Report 6739847-5 (Version None)
Quarter: 2010Q2

REPORT INFORMATION
  Report Type: 
  Country: None (occurrence: None)
  Receive Date: 20100525
  Receipt Date: 20100519
  Transmission Date: 20101027
  Serious: Yes (Hospitalization)
  Sender: FDA-Public Use
  Company Number: US-BRISTOL-MYERS SQUIBB COMPANY-15094949

PATIENT
  Age: 84 Year
  Sex: Male
  Weight: 85 kg

DRUGS (10)
  1. DASATINIB [Suspect]
     Indication: NON-SMALL CELL LUNG CANCER
     Dosage: LAST ADMIN:22-APR-2010
     Route: 048
     Dates: start: 20100401
  2. TAXOL [Suspect]
     Indication: NON-SMALL CELL LUNG CANCER
     Route: 042
     Dates: start: 20100401
  3. CARBOPLATIN [Suspect]
     Indication: NON-SMALL CELL LUNG CANCER
     Dosage: 1 DF= AUC 2
     Route: 042
     Dates: start: 20100401
  4. RADIATION THERAPY [Suspect]
     Indication: NON-SMALL CELL LUNG CANCER
  5. SPECTRAVITE [Concomitant]
  6. GLUCOSAMINE [Concomitant]
  7. GEMFIBROZIL [Concomitant]
  8. SIMVASTATIN [Concomitant]
  9. BUPROPION HCL [Concomitant]
  10. FINASTERIDE [Concomitant]

REACTIONS (4)
  - HYPOKALAEMIA [None]
  - HYPOMAGNESAEMIA [None]
  - HYPOTENSION [None]
  - SUPRAVENTRICULAR TACHYARRHYTHMIA [None]
